FAERS Safety Report 4658814-9 (Version None)
Quarter: 2005Q2

REPORT INFORMATION
  Report Type: 
  Country: None (occurrence: None)
  Receive Date: 20050510
  Receipt Date: 20050510
  Transmission Date: 20051028
  Serious: Yes (Death, Hospitalization)
  Sender: FDA-Public Use
  Company Number: None

PATIENT
  Sex: Male
  Weight: 143.6 kg

DRUGS (2)
  1. CARBOPLATIN [Suspect]
     Dosage: AUC 6
     Dates: start: 20050323, end: 20050323
  2. PACITAXEL [Suspect]
     Dosage: 225 MG/M2
     Dates: end: 20050323

REACTIONS (12)
  - BLOOD PH DECREASED [None]
  - COUGH [None]
  - DYSPNOEA [None]
  - ERYTHEMA [None]
  - HYPERKALAEMIA [None]
  - HYPERTENSION [None]
  - MENTAL STATUS CHANGES [None]
  - NEPHROPATHY [None]
  - PCO2 INCREASED [None]
  - PNEUMONIA [None]
  - RENAL FAILURE ACUTE [None]
  - SOMNOLENCE [None]
